FAERS Safety Report 7910750-8 (Version None)
Quarter: 2011Q4

REPORT INFORMATION
  Report Type: 
  Country: None (occurrence: None)
  Receive Date: 20111112
  Receipt Date: 20111102
  Transmission Date: 20120403
  Serious: Yes (Hospitalization, Other)
  Sender: FDA-Public Use
  Company Number: US-ASTRAZENECA-2011SE47764

PATIENT
  Age: 70 Year
  Sex: Male
  Weight: 93.4 kg

DRUGS (1)
  1. CRESTOR [Suspect]
     Route: 048
     Dates: start: 20100101, end: 20110701

REACTIONS (9)
  - FALL [None]
  - ADVERSE DRUG REACTION [None]
  - TENDON DISORDER [None]
  - MALAISE [None]
  - OEDEMA PERIPHERAL [None]
  - DEAFNESS [None]
  - ARTERIAL DISORDER [None]
  - GAIT DISTURBANCE [None]
  - MUSCULAR WEAKNESS [None]
